FAERS Safety Report 8791175 (Version 1)
Quarter: 2012Q4

REPORT INFORMATION
  Report Type: Spontaneous
  Country: ES (occurrence: None)
  Receive Date: 20120912
  Receipt Date: 20120912
  Transmission Date: 20130627
  Serious: Yes (Hospitalization)
  Sender: FDA-Public Use
  Company Number: DSM-2012-00959

PATIENT
  Age: 61 Year
  Sex: Female

DRUGS (2)
  1. OLMESARTAN MEDOXOMIL [Suspect]
     Route: 048
     Dates: start: 20100921, end: 20101007
  2. JANUMET [Suspect]
     Route: 048
     Dates: start: 20100921, end: 20101007

REACTIONS (4)
  - Decreased appetite [None]
  - Anuria [None]
  - Renal failure acute [None]
  - Vomiting [None]
